FAERS Safety Report 15464721 (Version 1)
Quarter: 2018Q4

REPORT INFORMATION
  Report Type: Spontaneous
  Country: PL (occurrence: PL)
  Receive Date: 20181004
  Receipt Date: 20181004
  Transmission Date: 20190204
  Serious: Yes (Other)
  Sender: FDA-Public Use
  Company Number: PL-BAYER-2018-180535

PATIENT
  Age: 31 Year
  Sex: Female

DRUGS (3)
  1. INTERFERON BETA - 1B [Suspect]
     Active Substance: INTERFERON BETA-1B
     Indication: MULTIPLE SCLEROSIS
     Dosage: UNK
     Dates: start: 201701
  2. INTERFERON BETA - 1B [Suspect]
     Active Substance: INTERFERON BETA-1B
     Indication: MULTIPLE SCLEROSIS
     Dosage: UNK
     Dates: start: 200611, end: 2009
  3. INTERFERON BETA - 1B [Suspect]
     Active Substance: INTERFERON BETA-1B
     Indication: MULTIPLE SCLEROSIS
     Dosage: UNK
     Dates: start: 201010

REACTIONS (10)
  - Multiple sclerosis relapse [None]
  - Multiple sclerosis [None]
  - Schwannoma [None]
  - Caesarean section [None]
  - Influenza like illness [None]
  - Maternal exposure during pregnancy [None]
  - Multiple sclerosis relapse [None]
  - Multiple sclerosis [None]
  - Paraparesis [None]
  - Multiple sclerosis relapse [None]

NARRATIVE: CASE EVENT DATE: 200611
